FAERS Safety Report 15498615 (Version 1)
Quarter: 2018Q4

REPORT INFORMATION
  Report Type: Spontaneous
  Country: US (occurrence: US)
  Receive Date: 20181015
  Receipt Date: 20181015
  Transmission Date: 20190205
  Serious: Yes (Other)
  Sender: FDA-Public Use
  Company Number: US-GLAXOSMITHKLINE-US2018181548

PATIENT
  Age: 71 Year
  Sex: Male

DRUGS (1)
  1. PERDIEM (SENNOSIDES A AND B) [Suspect]
     Active Substance: SENNOSIDES A AND B
     Indication: GASTROINTESTINAL DISORDER
     Dosage: UNK
     Route: 048

REACTIONS (5)
  - Headache [Recovering/Resolving]
  - Drug hypersensitivity [Recovering/Resolving]
  - Cerebrovascular accident [Unknown]
  - Vision blurred [Recovering/Resolving]
  - Malaise [Recovering/Resolving]
